FAERS Safety Report 8011337-1 (Version None)
Quarter: 2011Q4

REPORT INFORMATION
  Report Type: 
  Country: None (occurrence: None)
  Receive Date: 20111228
  Receipt Date: 20111228
  Transmission Date: 20120403
  Serious: Yes (Hospitalization)
  Sender: FDA-Public Use
  Company Number: None

PATIENT
  Age: 60 Year
  Sex: Male
  Weight: 74 kg

DRUGS (3)
  1. ENALAPRIL MALEATE [Concomitant]
  2. VANCOMYCIN HYCHLORIDE [Suspect]
     Indication: OSTEOMYELITIS
     Dosage: 1.5 GRAMS
     Route: 042
     Dates: start: 20110727, end: 20110728
  3. VANCOMYCIN HYCHLORIDE [Concomitant]
     Dosage: 1.25 GRAMS
     Route: 042
     Dates: start: 20110729, end: 20110731

REACTIONS (3)
  - ABSCESS LIMB [None]
  - OSTEOMYELITIS [None]
  - TOE AMPUTATION [None]
